FAERS Safety Report 7965899-0 (Version None)
Quarter: 2011Q4

REPORT INFORMATION
  Report Type: 
  Country: None (occurrence: None)
  Receive Date: 20111208
  Receipt Date: 20111205
  Transmission Date: 20120403
  Serious: Yes (Hospitalization)
  Sender: FDA-Public Use
  Company Number: PE-GLAXOSMITHKLINE-A0957190A

PATIENT
  Age: 10 Month
  Sex: Male

DRUGS (2)
  1. STEROIDS [Concomitant]
  2. FLUTICASONE PROPIONATE/SALMETEROL [Suspect]
     Indication: PNEUMONIA
     Dosage: 1PUFF PER DAY
     Route: 055
     Dates: start: 20111124

REACTIONS (2)
  - BRONCHOSPASM [None]
  - CONDITION AGGRAVATED [None]
